FAERS Safety Report 4288796-3 (Version None)
Quarter: 2004Q1

REPORT INFORMATION
  Report Type: 
  Country: None (occurrence: None)
  Receive Date: 20040130
  Receipt Date: 20030626
  Transmission Date: 20041129
  Serious: Yes (Other)
  Sender: FDA-Public Use
  Company Number: PHEH2003US05205

PATIENT
  Age: 2 Year

DRUGS (1)
  1. RITALIN LA [Suspect]
     Dosage: 40 MG, ONCE/SINGLE, ORAL
     Route: 048

REACTIONS (7)
  - ACCIDENTAL EXPOSURE [None]
  - DYSKINESIA [None]
  - HEART RATE ABNORMAL [None]
  - INSOMNIA [None]
  - LOGORRHOEA [None]
  - PSYCHOMOTOR HYPERACTIVITY [None]
  - VOMITING [None]
